FAERS Safety Report 12598751 (Version 1)
Quarter: 2016Q3

REPORT INFORMATION
  Report Type: Spontaneous
  Country: US (occurrence: US)
  Receive Date: 20160726
  Receipt Date: 20160726
  Transmission Date: 20161109
  Serious: Yes (Life-Threatening)
  Sender: FDA-Public Use
  Company Number: US-IMPAX LABORATORIES, INC-2015AMD00188

PATIENT
  Age: 35 Year
  Sex: Female
  Weight: 68.27 kg

DRUGS (10)
  1. INDERAL [Concomitant]
     Active Substance: PROPRANOLOL HYDROCHLORIDE
  2. UNSPECIFIED ANTIDEPRESSANT [Concomitant]
  3. FAMVIR [Concomitant]
     Active Substance: FAMCICLOVIR
  4. NEURONTIN [Concomitant]
     Active Substance: GABAPENTIN
  5. KLONOPIN [Concomitant]
     Active Substance: CLONAZEPAM
  6. ALBUTEROL. [Concomitant]
     Active Substance: ALBUTEROL
  7. ADRENACLICK [Suspect]
     Active Substance: EPINEPHRINE
     Indication: FOOD ALLERGY
     Dosage: 0.3 MG, ONCE
     Route: 030
     Dates: start: 20150903, end: 20150903
  8. MAXALT [Concomitant]
     Active Substance: RIZATRIPTAN BENZOATE
  9. OXYCODONE [Concomitant]
     Active Substance: OXYCODONE
  10. ZOFRAN [Concomitant]
     Active Substance: ONDANSETRON HYDROCHLORIDE

REACTIONS (3)
  - Migraine [Recovered/Resolved]
  - Therapeutic response decreased [Recovered/Resolved]
  - Injection site pain [Not Recovered/Not Resolved]

NARRATIVE: CASE EVENT DATE: 20150903
